FAERS Safety Report 18220404 (Version 2)
Quarter: 2020Q3

REPORT INFORMATION
  Report Type: Spontaneous
  Country: US (occurrence: US)
  Receive Date: 20200902
  Receipt Date: 20200902
  Transmission Date: 20201103
  Serious: Yes (Other)
  Sender: FDA-Public Use
  Company Number: US-VISTAPHARM, INC.-VER202008-001425

PATIENT
  Age: 34 Year
  Sex: Male

DRUGS (10)
  1. METHOTREXATE. [Concomitant]
     Active Substance: METHOTREXATE
     Indication: EYE PAIN
     Dosage: 400 PG/0.1 ML
     Route: 031
  2. RETISERT [Concomitant]
     Active Substance: FLUOCINOLONE ACETONIDE
     Indication: EYE PAIN
  3. METHOTREXATE. [Concomitant]
     Active Substance: METHOTREXATE
     Indication: CYSTOID MACULAR OEDEMA
  4. RETISERT [Concomitant]
     Active Substance: FLUOCINOLONE ACETONIDE
     Indication: VISUAL IMPAIRMENT
     Dosage: UNKNOWN
     Route: 031
  5. MYCOPHENOLATE MOFETIL, USP [Suspect]
     Active Substance: MYCOPHENOLATE MOFETIL
     Indication: VOGT-KOYANAGI-HARADA DISEASE
     Dosage: 500 MG
  6. ADALIMUMAB [Suspect]
     Active Substance: ADALIMUMAB
     Indication: VOGT-KOYANAGI-HARADA DISEASE
     Dosage: UNKNOWN (SIX TREATMENTS)
     Route: 058
  7. TRIAMCINOLONE ACETATE [Suspect]
     Active Substance: TRIAMCINOLONE ACETONIDE
     Indication: VOGT-KOYANAGI-HARADA DISEASE
     Dosage: UNKNOWN (TWO INJECTIONS)
  8. PREDNISOLONE. [Suspect]
     Active Substance: PREDNISOLONE
     Indication: VOGT-KOYANAGI-HARADA DISEASE
     Dosage: 1% (IN BOTH EYES)
  9. PREDNISONE. [Suspect]
     Active Substance: PREDNISONE
     Indication: VOGT-KOYANAGI-HARADA DISEASE
     Dosage: 25 MG
  10. RETISERT [Concomitant]
     Active Substance: FLUOCINOLONE ACETONIDE
     Indication: CYSTOID MACULAR OEDEMA

REACTIONS (10)
  - Eye pain [Recovered/Resolved]
  - Insomnia [Unknown]
  - Inflammation [Recovered/Resolved]
  - Hepatic enzyme increased [Unknown]
  - Hepatotoxicity [Unknown]
  - Cataract [Recovered/Resolved]
  - Drug ineffective for unapproved indication [Unknown]
  - Osteonecrosis [Unknown]
  - Blindness [Recovered/Resolved]
  - Cystoid macular oedema [Recovered/Resolved]
